FAERS Safety Report 6698373-2 (Version None)
Quarter: 2010Q2

REPORT INFORMATION
  Report Type: 
  Country: None (occurrence: None)
  Receive Date: 20100427
  Receipt Date: 20100416
  Transmission Date: 20101027
  Serious: Yes (Other)
  Sender: FDA-Public Use
  Company Number: US-JNJCH-2010009660

PATIENT
  Sex: Female

DRUGS (2)
  1. BENADRYL [Suspect]
     Indication: HYPERSENSITIVITY
     Dosage: TEXT:ONE AT NIGHT
     Route: 048
     Dates: start: 20100414, end: 20100414
  2. METOPROLOL [Concomitant]
     Indication: HYPERTENSION
     Dosage: TEXT:ONE TABLET 50MG
     Route: 048

REACTIONS (6)
  - ANXIETY [None]
  - BLOOD PRESSURE INCREASED [None]
  - DRUG DISPENSING ERROR [None]
  - FEELING ABNORMAL [None]
  - FORMICATION [None]
  - SOMNOLENCE [None]
